FAERS Safety Report 24539560 (Version 2)
Quarter: 2024Q4

REPORT INFORMATION
  Report Type: Spontaneous
  Country: US (occurrence: US)
  Receive Date: 20241023
  Receipt Date: 20241125
  Transmission Date: 20250115
  Serious: Yes (Other)
  Sender: AMGEN
  Company Number: US-AMGEN-USASP2024207055

PATIENT
  Age: 73 Year
  Sex: Female

DRUGS (3)
  1. REPATHA [Suspect]
     Active Substance: EVOLOCUMAB
     Indication: Product used for unknown indication
     Dosage: UNK (PRODUCT STRENGTH: 140 MG)
     Route: 065
  2. REPATHA [Suspect]
     Active Substance: EVOLOCUMAB
     Dosage: UNK (PRODUCT STRENGTH: 140 MG)
     Route: 065
  3. OZEMPIC [Concomitant]
     Active Substance: SEMAGLUTIDE

REACTIONS (6)
  - Neuropathy peripheral [Unknown]
  - Device difficult to use [Unknown]
  - Accidental exposure to product [Unknown]
  - Product communication issue [Unknown]
  - Incorrect dose administered by product [Unknown]
  - Device use error [Unknown]

NARRATIVE: CASE EVENT DATE: 20240926
